FAERS Safety Report 6191536-4 (Version None)
Quarter: 2009Q2

REPORT INFORMATION
  Report Type: 
  Country: None (occurrence: None)
  Receive Date: 20090515
  Receipt Date: 20090511
  Transmission Date: 20091009
  Serious: Yes (Hospitalization)
  Sender: FDA-Public Use
  Company Number: US-TEVA-194657USA

PATIENT
  Age: 75 Year
  Sex: Male

DRUGS (5)
  1. MIRTAZAPINE [Suspect]
     Indication: DEPRESSION
     Route: 048
  2. DEMECLOCYCLINE HCL [Suspect]
     Route: 048
  3. BUSPIRONE HCL [Concomitant]
  4. BENZATROPINE [Concomitant]
  5. OXYBUTYNIN [Concomitant]

REACTIONS (3)
  - HYPONATRAEMIA [None]
  - HYPOVOLAEMIA [None]
  - INAPPROPRIATE ANTIDIURETIC HORMONE SECRETION [None]
